FAERS Safety Report 24346561 (Version 2)
Quarter: 2024Q3

REPORT INFORMATION
  Report Type: Spontaneous
  Country: CA (occurrence: CA)
  Receive Date: 20240921
  Receipt Date: 20240928
  Transmission Date: 20241016
  Serious: Yes (Other)
  Sender: CELLTRION
  Company Number: CA-PFIZER INC-202400244865

PATIENT

DRUGS (3)
  1. INFLECTRA [Suspect]
     Active Substance: INFLIXIMAB-DYYB
     Indication: Crohn^s disease
     Dosage: 600 MG, INDUCTION WEEKS 0, 2, 6 MAINTENANCE Q 8 WEEKS
     Route: 042
     Dates: start: 20240809
  2. INFLECTRA [Suspect]
     Active Substance: INFLIXIMAB-DYYB
     Dosage: 600 MG, WEEK 2 (INDUCTION WEEKS 0, 2, 6 MAINTENANCE Q 8 WEEKS)
     Route: 042
     Dates: start: 20240823
  3. ETANERCEPT [Concomitant]
     Active Substance: ETANERCEPT
     Indication: Crohn^s disease
     Dosage: 1 DF, UNKNOWN DOSAGE INFO

REACTIONS (4)
  - Immunosuppression [Unknown]
  - Herpes zoster [Recovering/Resolving]
  - COVID-19 [Unknown]
  - Scab [Unknown]

NARRATIVE: CASE EVENT DATE: 20240101
